FAERS Safety Report 6094986-X (Version None)
Quarter: 2009Q1

REPORT INFORMATION
  Report Type: 
  Country: None (occurrence: None)
  Receive Date: 20090227
  Receipt Date: 20090213
  Transmission Date: 20090719
  Serious: Yes (Hospitalization)
  Sender: FDA-Public Use
  Company Number: US-ELI_LILLY_AND_COMPANY-US200902003588

PATIENT
  Sex: Female

DRUGS (1)
  1. FORTEO [Suspect]
     Dates: start: 20090101

REACTIONS (4)
  - BACK DISORDER [None]
  - BACK PAIN [None]
  - CHOLECYSTECTOMY [None]
  - PROCEDURAL PAIN [None]
